FAERS Safety Report 15585275 (Version 2)
Quarter: 2018Q4

REPORT INFORMATION
  Report Type: Spontaneous
  Country: JP (occurrence: JP)
  Receive Date: 20181102
  Receipt Date: 20181113
  Transmission Date: 20190205
  Serious: Yes (Hospitalization)
  Sender: FDA-Public Use
  Company Number: JP-ALLERGAN-1852011US

PATIENT
  Age: 65 Year
  Sex: Male

DRUGS (2)
  1. SILODOSIN - BP [Suspect]
     Active Substance: SILODOSIN
     Indication: DYSURIA
     Dosage: UNK
     Route: 048
  2. SILODOSIN - BP [Suspect]
     Active Substance: SILODOSIN
     Dosage: UNK
     Route: 048

REACTIONS (6)
  - Retrograde ejaculation [Unknown]
  - Diarrhoea [Unknown]
  - Prostatitis [Unknown]
  - Anal incontinence [Unknown]
  - Off label use [Unknown]
  - Nocturia [Unknown]
